FAERS Safety Report 6861720-2 (Version None)
Quarter: 2010Q3

REPORT INFORMATION
  Report Type: 
  Country: None (occurrence: None)
  Receive Date: 20100721
  Receipt Date: 20100712
  Transmission Date: 20110219
  Serious: No
  Sender: FDA-Public Use
  Company Number: US-BIOGENIDEC-2010BI024040

PATIENT
  Sex: Female

DRUGS (1)
  1. TYSABRI [Suspect]
     Indication: MULTIPLE SCLEROSIS
     Route: 042
     Dates: start: 20090924

REACTIONS (18)
  - ARTHRALGIA [None]
  - COORDINATION ABNORMAL [None]
  - CRYING [None]
  - CYSTITIS [None]
  - DEPRESSION [None]
  - FALL [None]
  - HEADACHE [None]
  - INSOMNIA [None]
  - LIMB INJURY [None]
  - MULTIPLE SCLEROSIS RELAPSE [None]
  - MUSCLE DISORDER [None]
  - MUSCLE SPASMS [None]
  - MUSCULOSKELETAL DISORDER [None]
  - PAIN [None]
  - RENAL DISORDER [None]
  - SENSATION OF HEAVINESS [None]
  - UPPER RESPIRATORY TRACT INFECTION [None]
  - WEIGHT INCREASED [None]
